FAERS Safety Report 8803405 (Version 4)
Quarter: 2015Q1

REPORT INFORMATION
  Report Type: Report from Study
  Country: US (occurrence: US)
  Receive Date: 20120924
  Receipt Date: 20150312
  Transmission Date: 20150721
  Serious: Yes (Death, Other)
  Sender: FDA-Public Use
  Company Number: US-ROCHE-1093432

PATIENT
  Age: 40 Year
  Sex: Female
  Weight: 66.74 kg

DRUGS (27)
  1. AVASTIN [Suspect]
     Active Substance: BEVACIZUMAB
     Indication: BREAST CANCER FEMALE
     Route: 042
     Dates: start: 20070301
  2. ANZEMET [Concomitant]
     Active Substance: DOLASETRON MESYLATE
     Route: 042
  3. CARBOPLATIN. [Concomitant]
     Active Substance: CARBOPLATIN
     Route: 042
     Dates: start: 20070301
  4. BENADRYL + DYCLONE MOUTHRINSE [Concomitant]
     Route: 048
  5. PREVACID [Concomitant]
     Active Substance: LANSOPRAZOLE
     Route: 048
  6. NEUPOGEN [Concomitant]
     Active Substance: FILGRASTIM
     Route: 058
  7. NEOMYCIN SULFATE. [Concomitant]
     Active Substance: NEOMYCIN SULFATE
  8. AVASTIN [Suspect]
     Active Substance: BEVACIZUMAB
     Route: 042
  9. LIPITOR [Concomitant]
     Active Substance: ATORVASTATIN CALCIUM
     Route: 048
  10. ARANESP [Concomitant]
     Active Substance: DARBEPOETIN ALFA
     Route: 042
  11. ALOXI [Concomitant]
     Active Substance: PALONOSETRON HYDROCHLORIDE
     Route: 042
  12. CATHFLO ACTIVASE [Concomitant]
     Active Substance: ALTEPLASE
     Route: 042
  13. AVASTIN [Suspect]
     Active Substance: BEVACIZUMAB
     Indication: INVASIVE DUCTAL BREAST CARCINOMA
     Route: 042
  14. ZOFRAN [Concomitant]
     Active Substance: ONDANSETRON HYDROCHLORIDE
     Route: 048
  15. ZYRTEC [Concomitant]
     Active Substance: CETIRIZINE HYDROCHLORIDE
     Route: 048
  16. AMBIEN [Concomitant]
     Active Substance: ZOLPIDEM TARTRATE
     Route: 048
  17. TYLENOL [Concomitant]
     Active Substance: ACETAMINOPHEN
     Route: 048
  18. EFFEXOR XR [Concomitant]
     Active Substance: VENLAFAXINE HYDROCHLORIDE
     Route: 048
  19. OXYCONTIN [Concomitant]
     Active Substance: OXYCODONE HYDROCHLORIDE
     Route: 048
  20. MEDROL [Concomitant]
     Active Substance: METHYLPREDNISOLONE
     Dosage: 2 QAM, 1 QPM
     Route: 048
  21. HERCEPTIN [Suspect]
     Active Substance: TRASTUZUMAB
     Indication: PRODUCT USED FOR UNKNOWN INDICATION
     Route: 065
  22. ABRAXANE [Concomitant]
     Active Substance: PACLITAXEL
     Route: 042
     Dates: start: 20070301
  23. ATIVAN [Concomitant]
     Active Substance: LORAZEPAM
     Route: 048
  24. XANAX [Concomitant]
     Active Substance: ALPRAZOLAM
     Route: 048
  25. DECADRON [Concomitant]
     Active Substance: DEXAMETHASONE
     Route: 042
  26. LOTENSIN (UNITED STATES) [Concomitant]
     Route: 048
  27. VICODIN [Concomitant]
     Active Substance: ACETAMINOPHEN\HYDROCODONE BITARTRATE
     Indication: HEADACHE
     Route: 065

REACTIONS (17)
  - Death [Fatal]
  - Oropharyngeal pain [Unknown]
  - Fatigue [Unknown]
  - Constipation [Unknown]
  - Oropharyngeal pain [Unknown]
  - Arthralgia [Unknown]
  - Sepsis [Unknown]
  - Mood swings [Unknown]
  - Pyrexia [Unknown]
  - Joint stiffness [Recovering/Resolving]
  - Disease progression [Unknown]
  - Ear pain [Unknown]
  - Urinary tract infection [Unknown]
  - Lymphadenopathy [Unknown]
  - Dehydration [Unknown]
  - Otitis externa [Unknown]
  - Nausea [Unknown]

NARRATIVE: CASE EVENT DATE: 20070410
